FAERS Safety Report 16540563 (Version 1)
Quarter: 2019Q3

REPORT INFORMATION
  Report Type: Spontaneous
  Country: US (occurrence: US)
  Receive Date: 20190525
  Receipt Date: 20190525
  Transmission Date: 20191004
  Serious: No
  Sender: FDA-Public Use
  Company Number: None

PATIENT
  Age: 71 Year
  Sex: Female

DRUGS (1)
  1. NAPROXEN TAB 500MG [Suspect]
     Active Substance: NAPROXEN
     Dates: start: 20190512, end: 20190512

REACTIONS (3)
  - Drug hypersensitivity [None]
  - Urticaria [None]
  - Pain [None]

NARRATIVE: CASE EVENT DATE: 20190512
